FAERS Safety Report 6584894-X (Version None)
Quarter: 2010Q1

REPORT INFORMATION
  Report Type: 
  Country: None (occurrence: None)
  Receive Date: 20100204
  Receipt Date: 20100121
  Transmission Date: 20100710
  Serious: Yes (Hospitalization)
  Sender: FDA-Public Use
  Company Number: 230720J10USA

PATIENT
  Age: 40 Year
  Sex: Female
  Weight: 103 kg

DRUGS (4)
  1. REBIF [Suspect]
     Indication: MULTIPLE SCLEROSIS
     Dosage: 44 MCG, 3 IN 1 WEEKS, SUBCUTANEOUS
     Route: 058
     Dates: start: 20070926
  2. ZOLOFT [Concomitant]
  3. RISPERIDONE [Concomitant]
  4. ORTHO TRI-CYCLEN LO [Concomitant]

REACTIONS (4)
  - INJECTION SITE ERYTHEMA [None]
  - INJECTION SITE INFECTION [None]
  - INJECTION SITE PAIN [None]
  - STAPHYLOCOCCAL INFECTION [None]
